FAERS Safety Report 9294756 (Version 2)
Quarter: 2013Q4

REPORT INFORMATION
  Report Type: Spontaneous
  Country: US (occurrence: None)
  Receive Date: 20130514
  Receipt Date: 20131024
  Transmission Date: 20140711
  Serious: Yes (Hospitalization, Other)
  Sender: FDA-Public Use
  Company Number: JPI-P-031452

PATIENT
  Age: 25 Year
  Sex: Male
  Weight: 93.9 kg

DRUGS (10)
  1. XYREM (500 MILLIGRAM/MILLILITERS, SOLUTION) (SODIUM OXYBATE) [Suspect]
     Dosage: UNSPECIFIED DOSE, ORAL
     Route: 048
     Dates: start: 201205, end: 201303
  2. PREGABALIN [Suspect]
     Indication: PRODUCT USED FOR UNKNOWN INDICATION
     Dosage: UNKNOWN, SINGLE
  3. ALPRAZOLAM [Suspect]
     Indication: PRODUCT USED FOR UNKNOWN INDICATION
     Dosage: UNKNOWN, SINGLE
  4. HYDROCODONE [Suspect]
     Indication: PRODUCT USED FOR UNKNOWN INDICATION
     Dosage: UNKNOWN, SINGLE
  5. AXIRON (TESTOSTERONE) [Concomitant]
  6. GABITRIL (TIAGABINE HYDROCHLORIDE) [Concomitant]
  7. LAMICTAL (LAMOTRIGINE) [Concomitant]
  8. MAGNESIUM OXIDE [Concomitant]
  9. OMEPRAZOLE [Concomitant]
  10. TYLENOL EXTRA STRENGTH (PARACETAMOL) [Concomitant]

REACTIONS (11)
  - Drug dependence [None]
  - Anger [None]
  - Back pain [None]
  - Insomnia [None]
  - Surgery [None]
  - Somnolence [None]
  - Sedation [None]
  - Insomnia [None]
  - Neck pain [None]
  - Condition aggravated [None]
  - Incorrect dose administered [None]
